FAERS Safety Report 8258892-4 (Version None)
Quarter: 2012Q2

REPORT INFORMATION
  Report Type: 
  Country: None (occurrence: None)
  Receive Date: 20120403
  Receipt Date: 20120403
  Transmission Date: 20120825
  Serious: No
  Sender: FDA-Public Use
  Company Number: None

PATIENT
  Age: 66 Year
  Sex: Male
  Weight: 81.8 kg

DRUGS (1)
  1. LENALIDOMIDE [Suspect]
     Dosage: 10 MG OTHER PO
     Route: 048
     Dates: start: 20110104, end: 20110111

REACTIONS (6)
  - PAPULE [None]
  - DRUG ERUPTION [None]
  - RASH ERYTHEMATOUS [None]
  - SKIN HYPERPIGMENTATION [None]
  - PRURITUS [None]
  - XEROSIS [None]
